FAERS Safety Report 21560943 (Version 1)
Quarter: 2022Q4

REPORT INFORMATION
  Report Type: Spontaneous
  Country: IT (occurrence: IT)
  Receive Date: 20221107
  Receipt Date: 20221107
  Transmission Date: 20230112
  Serious: Yes (Other)
  Sender: FDA-Public Use
  Company Number: None

PATIENT
  Age: 74 Year
  Sex: Female

DRUGS (1)
  1. ALLOPURINOL [Suspect]
     Active Substance: ALLOPURINOL
     Indication: Product used for unknown indication
     Dosage: 150 MG
     Route: 048
     Dates: start: 20220904, end: 20220904

REACTIONS (1)
  - Throat tightness [Recovering/Resolving]

NARRATIVE: CASE EVENT DATE: 20220905
